FAERS Safety Report 8347519-9 (Version None)
Quarter: 2012Q2

REPORT INFORMATION
  Report Type: 
  Country: None (occurrence: None)
  Receive Date: 20120509
  Receipt Date: 20120501
  Transmission Date: 20120825
  Serious: No
  Sender: FDA-Public Use
  Company Number: US-ROXANE LABORATORIES, INC.-2012-RO-01168RO

PATIENT
  Sex: Female

DRUGS (4)
  1. FUROSEMIDE [Suspect]
     Indication: DIURETIC THERAPY
     Dosage: 40 MG
     Route: 048
     Dates: start: 20120501, end: 20120501
  2. NITROGLYCERIN [Concomitant]
  3. POTASSIUM CHLORIDE [Concomitant]
  4. MENEST [Concomitant]

REACTIONS (1)
  - DRUG INEFFECTIVE [None]
